FAERS Safety Report 10538193 (Version 1)
Quarter: 2014Q4

REPORT INFORMATION
  Report Type: Spontaneous
  Country: SE (occurrence: SE)
  Receive Date: 20141023
  Receipt Date: 20141023
  Transmission Date: 20150529
  Serious: Yes (Other)
  Sender: FDA-Public Use
  Company Number: SE-MYLANLABS-2014M1007224

PATIENT

DRUGS (3)
  1. LOPERAMID MYLAN [Suspect]
     Active Substance: LOPERAMIDE
     Indication: DIARRHOEA
     Dosage: TWO TABLETS IN THE MORNING
     Dates: start: 201408
  2. ATACAND [Concomitant]
     Active Substance: CANDESARTAN CILEXETIL
     Indication: HYPERTENSION
     Dosage: 1 TABLET A DAY
  3. ASACOL [Concomitant]
     Active Substance: MESALAMINE
     Indication: COLITIS ULCERATIVE
     Dosage: DOSE VARYING

REACTIONS (3)
  - Large intestinal haemorrhage [Unknown]
  - Drug ineffective [Unknown]
  - Haematochezia [Unknown]
